FAERS Safety Report 25669493 (Version 1)
Quarter: 2025Q3

REPORT INFORMATION
  Report Type: Spontaneous
  Country: US (occurrence: US)
  Receive Date: 20250812
  Receipt Date: 20250812
  Transmission Date: 20251021
  Serious: No
  Sender: APOTEX
  Company Number: US-APOTEX-2025AP010844

PATIENT
  Age: 32 Year
  Sex: Female

DRUGS (2)
  1. SIROLIMUS [Suspect]
     Active Substance: SIROLIMUS
     Indication: Lymphatic malformation
     Route: 065
  2. SIROLIMUS [Suspect]
     Active Substance: SIROLIMUS
     Route: 065

REACTIONS (2)
  - Maternal exposure during pregnancy [Unknown]
  - Urinary tract infection [Unknown]
